FAERS Safety Report 25619043 (Version 1)
Quarter: 2025Q3

REPORT INFORMATION
  Report Type: Spontaneous
  Country: US (occurrence: None)
  Receive Date: 20250729
  Receipt Date: 20250729
  Transmission Date: 20251021
  Serious: No
  Sender: INCYTE
  Company Number: US-INCYTE CORPORATION-2025IN008017

PATIENT
  Age: 67 Year

DRUGS (2)
  1. JAKAFI [Suspect]
     Active Substance: RUXOLITINIB
     Indication: Prolymphocytic leukaemia
     Dosage: 100 MILLIGRAM, QD
  2. VENCLEXTA [Concomitant]
     Active Substance: VENETOCLAX
     Indication: Prolymphocytic leukaemia
     Route: 065

REACTIONS (2)
  - Off label use [Unknown]
  - Prescribed overdose [Unknown]
